FAERS Safety Report 4902791-X (Version None)
Quarter: 2006Q1

REPORT INFORMATION
  Report Type: 
  Country: None (occurrence: None)
  Receive Date: 20060207
  Receipt Date: 20060126
  Transmission Date: 20060701
  Serious: Yes (Hospitalization)
  Sender: FDA-Public Use
  Company Number: FR-GLAXOSMITHKLINE-B0407931A

PATIENT
  Age: 49 Year
  Sex: Male
  Weight: 73 kg

DRUGS (3)
  1. EPIVIR [Suspect]
     Indication: HIV INFECTION
     Dosage: 300MG PER DAY
     Route: 048
     Dates: start: 20040315
  2. ZIAGEN [Suspect]
     Indication: HIV INFECTION
     Dosage: 1TAB TWICE PER DAY
     Route: 048
     Dates: start: 20040315
  3. KALETRA [Suspect]
     Indication: HIV INFECTION
     Dosage: 3UNIT THREE TIMES PER DAY
     Route: 048
     Dates: start: 20040315

REACTIONS (7)
  - CHOLANGITIS [None]
  - HEPATIC NECROSIS [None]
  - HEPATITIS [None]
  - INFLAMMATION [None]
  - LYMPHADENITIS [None]
  - PORTAL HYPERTENSION [None]
  - VARICES OESOPHAGEAL [None]
